FAERS Safety Report 6937366-4 (Version None)
Quarter: 2010Q3

REPORT INFORMATION
  Report Type: 
  Country: None (occurrence: None)
  Receive Date: 20100823
  Receipt Date: 20100814
  Transmission Date: 20110219
  Serious: Yes (Other)
  Sender: FDA-Public Use
  Company Number: IN-BAXTER-2010BH021666

PATIENT
  Sex: Male

DRUGS (1)
  1. SODIUM CHLORIDE 0.9% IN PLASTIC CONTAINER [Suspect]
     Indication: PRODUCT USED FOR UNKNOWN INDICATION
     Route: 042

REACTIONS (1)
  - CHILLS [None]
